FAERS Safety Report 13330158 (Version 1)
Quarter: 2017Q1

REPORT INFORMATION
  Report Type: Report from Study
  Country: None (occurrence: AR)
  Receive Date: 20170313
  Receipt Date: 20170313
  Transmission Date: 20170428
  Serious: Yes (Death, Hospitalization)
  Sender: FDA-Public Use
  Company Number: AR-ABBVIE-17P-007-1903567-00

PATIENT
  Sex: Female

DRUGS (1)
  1. HUMIRA [Suspect]
     Active Substance: ADALIMUMAB
     Indication: RHEUMATOID ARTHRITIS
     Route: 058
     Dates: start: 20161219

REACTIONS (5)
  - Immunodeficiency [Fatal]
  - Dyspnoea [Unknown]
  - Asthenia [Unknown]
  - Pyrexia [Unknown]
  - Anaemia [Unknown]
